FAERS Safety Report 9775743 (Version 1)
Quarter: 2013Q4

REPORT INFORMATION
  Report Type: Spontaneous
  Country: US (occurrence: US)
  Receive Date: 20131220
  Receipt Date: 20131220
  Transmission Date: 20140711
  Serious: Yes (Other)
  Sender: FDA-Public Use
  Company Number: US-BRISTOL-MYERS SQUIBB COMPANY-19902543

PATIENT
  Age: 57 Year
  Sex: Female
  Weight: 61.68 kg

DRUGS (3)
  1. ORENCIA [Suspect]
     Indication: RHEUMATOID ARTHRITIS
     Dosage: LAST INFUSION ON 18NOV2013
     Route: 042
     Dates: start: 201302
  2. ORENCIA [Suspect]
     Indication: SJOGREN^S SYNDROME
     Dosage: LAST INFUSION ON 18NOV2013
     Route: 042
     Dates: start: 201302
  3. AZATHIOPRINE [Suspect]

REACTIONS (5)
  - Loss of consciousness [Unknown]
  - Hypotension [Unknown]
  - Syncope [Unknown]
  - White blood cell count decreased [Recovering/Resolving]
  - Off label use [Unknown]
